FAERS Safety Report 20116174 (Version 2)
Quarter: 2022Q1

REPORT INFORMATION
  Report Type: Spontaneous
  Country: JP (occurrence: JP)
  Receive Date: 20211126
  Receipt Date: 20220104
  Transmission Date: 20220423
  Serious: Yes (Death, Other)
  Sender: FDA-Public Use
  Company Number: JP-BEH-2021138828

PATIENT
  Age: 78 Year
  Sex: Female

DRUGS (1)
  1. HIZENTRA [Suspect]
     Active Substance: HUMAN IMMUNOGLOBULIN G
     Dosage: 16 GRAM, QW
     Route: 058
     Dates: start: 20210112, end: 20210820

REACTIONS (5)
  - Chronic inflammatory demyelinating polyradiculoneuropathy [Fatal]
  - Diarrhoea [Fatal]
  - Melaena [Unknown]
  - Decreased appetite [Fatal]
  - Asthenia [Unknown]

NARRATIVE: CASE EVENT DATE: 20210626
